FAERS Safety Report 10376895 (Version 1)
Quarter: 2014Q3

REPORT INFORMATION
  Report Type: Spontaneous
  Country: BR (occurrence: BR)
  Receive Date: 20140811
  Receipt Date: 20140811
  Transmission Date: 20150326
  Serious: Yes (Disabling, Other)
  Sender: FDA-Public Use
  Company Number: BR-ABBVIE-14P-020-1270603-00

PATIENT
  Age: 47 Year
  Sex: Female
  Weight: 45 kg

DRUGS (5)
  1. DEPAKENE [Suspect]
     Active Substance: VALPROIC ACID
     Indication: CONVULSION
  2. PANTOPRAZOLE [Concomitant]
     Active Substance: PANTOPRAZOLE SODIUM
     Indication: PROPHYLAXIS
  3. GARDENAL [Concomitant]
     Active Substance: PHENOBARBITAL
     Indication: CONVULSION
     Dosage: 1 AND A QUARTER OF THE TABLET
     Route: 050
     Dates: start: 20111119
  4. PANTOPRAZOLE [Concomitant]
     Active Substance: PANTOPRAZOLE SODIUM
     Indication: GASTRIC DISORDER
     Dosage: 1 CAPSULE AT 07:AM AND 1 AT 07:00PM (DAILY DOSE:2 CAPSULE)
     Route: 050
     Dates: start: 20111119
  5. DEPAKENE [Suspect]
     Active Substance: VALPROIC ACID
     Dosage: AT 07:00AM, 12:00AM AND AT 09:PM: DAILY DOSE: 2250 MG
     Dates: start: 20111119

REACTIONS (10)
  - Dyskinesia [Unknown]
  - Product physical issue [Unknown]
  - Coma [Unknown]
  - Wrong technique in drug usage process [Unknown]
  - Dyspnoea [Recovered/Resolved]
  - Emotional poverty [Recovered/Resolved]
  - Tremor [Recovered/Resolved]
  - Convulsion [Recovered/Resolved]
  - Aphagia [Unknown]
  - Speech disorder [Recovered/Resolved]

NARRATIVE: CASE EVENT DATE: 2012
